FAERS Safety Report 5776953-6 (Version None)
Quarter: 2008Q2

REPORT INFORMATION
  Report Type: 
  Country: None (occurrence: None)
  Receive Date: 20080618
  Receipt Date: 20080407
  Transmission Date: 20081010
  Serious: No
  Sender: FDA-Public Use
  Company Number: US-ASTRAZENECA-2008UW06892

PATIENT
  Age: 8 Year
  Sex: Male
  Weight: 28.6 kg

DRUGS (3)
  1. SYMBICORT [Suspect]
     Indication: ASTHMA
     Dosage: 160 UG BID
     Route: 055
     Dates: start: 20071101
  2. SINGULAIR [Concomitant]
  3. ALBUTEROL [Concomitant]
     Route: 055

REACTIONS (4)
  - AGITATION [None]
  - ALTERED VISUAL DEPTH PERCEPTION [None]
  - ANXIETY [None]
  - RESTLESSNESS [None]
